FAERS Safety Report 11642694 (Version 2)
Quarter: 2015Q4

REPORT INFORMATION
  Report Type: Report from Study
  Country: US (occurrence: US)
  Receive Date: 20151020
  Receipt Date: 20151022
  Transmission Date: 20160304
  Serious: Yes (Death)
  Sender: FDA-Public Use
  Company Number: US-ROCHE-1648270

PATIENT
  Age: 57 Year
  Sex: Female

DRUGS (21)
  1. ZOMETA [Concomitant]
     Active Substance: ZOLEDRONIC ACID
     Route: 065
     Dates: start: 20150527
  2. ADVAIR DISKUS [Concomitant]
     Active Substance: FLUTICASONE PROPIONATE\SALMETEROL XINAFOATE
     Route: 065
     Dates: start: 20130707
  3. DEXAMETHASONE. [Concomitant]
     Active Substance: DEXAMETHASONE
     Dosage: 1 TABLET TWICE A DAY ON THE DAY BEFORE ALIMTA AND THE DAY AFTER
     Route: 048
     Dates: start: 20130618
  4. PROZAC [Concomitant]
     Active Substance: FLUOXETINE HYDROCHLORIDE
     Route: 065
     Dates: start: 20130607
  5. SPIRIVA [Concomitant]
     Active Substance: TIOTROPIUM BROMIDE MONOHYDRATE
     Route: 065
     Dates: start: 20130607
  6. ACYCLOVIR. [Concomitant]
     Active Substance: ACYCLOVIR
     Route: 048
  7. EMLA [Concomitant]
     Active Substance: LIDOCAINE\PRILOCAINE
     Dosage: APPLY TO PORT 1 HOUR PRIOR TO USE
     Route: 061
     Dates: start: 20140416
  8. PROCHLORPERAZINE MALEATE. [Concomitant]
     Active Substance: PROCHLORPERAZINE MALEATE
     Dosage: 1 TABLET ORAL EVERY 6 HOURS AS NEEDED FOR NAUSEA
     Route: 048
     Dates: start: 20130620
  9. AVASTIN [Suspect]
     Active Substance: BEVACIZUMAB
     Indication: PRODUCT USED FOR UNKNOWN INDICATION
     Route: 065
  10. ABILIFY [Concomitant]
     Active Substance: ARIPIPRAZOLE
     Route: 065
     Dates: start: 20130607
  11. DEXAMETHASONE. [Concomitant]
     Active Substance: DEXAMETHASONE
     Dosage: 5 TABLETS 13 HOURS AND 6 HOURS PRIOR TO TAXOL
     Route: 048
     Dates: start: 20130620
  12. MS CONTIN [Concomitant]
     Active Substance: MORPHINE SULFATE
     Dosage: EXTENDED RELEASE, 2 TABLET ORAL EVERY 8 HOURS AS NEEDED
     Route: 048
     Dates: start: 20150923
  13. SYMBICORT [Concomitant]
     Active Substance: BUDESONIDE\FORMOTEROL FUMARATE DIHYDRATE
     Route: 065
     Dates: start: 20130607
  14. OPDIVO [Concomitant]
     Active Substance: NIVOLUMAB
     Dosage: ON HOLD
     Route: 065
     Dates: start: 20150826, end: 20150923
  15. ALIMTA [Concomitant]
     Active Substance: PEMETREXED DISODIUM
     Route: 065
     Dates: start: 20150708, end: 20150812
  16. FOLIC ACID. [Concomitant]
     Active Substance: FOLIC ACID
     Route: 048
     Dates: start: 20150320
  17. SINGULAIR [Concomitant]
     Active Substance: MONTELUKAST SODIUM
     Route: 065
     Dates: start: 20130607
  18. PROCHLORPERAZINE MALEATE. [Concomitant]
     Active Substance: PROCHLORPERAZINE MALEATE
     Dosage: 1 TABLET ORAL EVERY 6 HOURS AS NEEDED FOR NAUSEA
     Route: 048
     Dates: start: 20150225
  19. PREVACID [Concomitant]
     Active Substance: LANSOPRAZOLE
     Route: 065
     Dates: start: 20130607
  20. MAGIC MOUTHWASH (BENADRYL, VISCOUS XYLOCAINE, MAALOX, NYSTATIN) [Concomitant]
     Dosage: 1-2 TSP EVERY 4 HOURS AS NEEDED AND SPIT
     Route: 065
     Dates: start: 20130807
  21. RANITIDINE [Concomitant]
     Active Substance: RANITIDINE\RANITIDINE HYDROCHLORIDE
     Route: 048
     Dates: start: 20150320

REACTIONS (1)
  - Non-small cell lung cancer metastatic [Fatal]

NARRATIVE: CASE EVENT DATE: 20151001
